FAERS Safety Report 21583974 (Version 1)
Quarter: 2022Q4

REPORT INFORMATION
  Report Type: Spontaneous
  Country: CA (occurrence: None)
  Receive Date: 20221111
  Receipt Date: 20221111
  Transmission Date: 20230113
  Serious: Yes (Other)
  Sender: FDA-Public Use
  Company Number: CA-ROCHE-3215593

PATIENT
  Age: 34 Year
  Sex: Male
  Weight: 126 kg

DRUGS (26)
  1. CLONAZEPAM [Suspect]
     Active Substance: CLONAZEPAM
     Indication: Product used for unknown indication
     Route: 065
  2. CLOZAPINE [Suspect]
     Active Substance: CLOZAPINE
     Indication: Product used for unknown indication
     Route: 065
  3. CLOZAPINE [Suspect]
     Active Substance: CLOZAPINE
     Route: 048
  4. CLOZAPINE [Suspect]
     Active Substance: CLOZAPINE
     Route: 048
  5. CLOZAPINE [Suspect]
     Active Substance: CLOZAPINE
     Route: 065
  6. CLOZAPINE [Suspect]
     Active Substance: CLOZAPINE
     Route: 065
  7. OLANZAPINE [Suspect]
     Active Substance: OLANZAPINE
     Indication: Product used for unknown indication
     Route: 065
  8. OLANZAPINE [Suspect]
     Active Substance: OLANZAPINE
     Route: 065
  9. OLANZAPINE [Suspect]
     Active Substance: OLANZAPINE
     Route: 065
  10. OLANZAPINE [Suspect]
     Active Substance: OLANZAPINE
     Route: 065
  11. OLANZAPINE [Suspect]
     Active Substance: OLANZAPINE
     Route: 065
  12. OLANZAPINE [Suspect]
     Active Substance: OLANZAPINE
     Route: 065
  13. ATROPINE [Concomitant]
     Active Substance: ATROPINE
     Route: 002
  14. ATORVASTATIN [Concomitant]
     Active Substance: ATORVASTATIN
     Route: 065
  15. GLICLAZIDE [Concomitant]
     Active Substance: GLICLAZIDE
     Route: 065
  16. GLYCOPYRROLATE [Concomitant]
     Active Substance: GLYCOPYRROLATE
     Route: 065
  17. LEVOMEPROMAZINE MALEATE [Concomitant]
     Active Substance: LEVOMEPROMAZINE MALEATE
     Indication: Agitation
     Route: 065
  18. LITHIUM [Concomitant]
     Active Substance: LITHIUM
     Route: 065
  19. LITHIUM [Concomitant]
     Active Substance: LITHIUM
     Route: 065
  20. MELATONIN [Concomitant]
     Active Substance: MELATONIN
     Route: 065
  21. METFORMIN [Concomitant]
     Active Substance: METFORMIN HYDROCHLORIDE
     Route: 065
  22. METFORMIN [Concomitant]
     Active Substance: METFORMIN HYDROCHLORIDE
     Route: 065
  23. PANTOPRAZOLE [Concomitant]
     Active Substance: PANTOPRAZOLE
     Route: 065
  24. VALPROATE SODIUM [Concomitant]
     Active Substance: VALPROATE SODIUM
  25. TYLENOL [Concomitant]
     Active Substance: ACETAMINOPHEN
  26. DIVALPROEX SODIUM [Concomitant]
     Active Substance: DIVALPROEX SODIUM

REACTIONS (10)
  - Diabetes mellitus [Not Recovered/Not Resolved]
  - Electrocardiogram QRS complex prolonged [Not Recovered/Not Resolved]
  - Electrocardiogram abnormal [Not Recovered/Not Resolved]
  - Glycosylated haemoglobin increased [Not Recovered/Not Resolved]
  - Hypertension [Not Recovered/Not Resolved]
  - Left ventricular hypertrophy [Not Recovered/Not Resolved]
  - Long QT syndrome [Not Recovered/Not Resolved]
  - Salivary hypersecretion [Not Recovered/Not Resolved]
  - Tremor [Not Recovered/Not Resolved]
  - Weight increased [Not Recovered/Not Resolved]
